FAERS Safety Report 9307833 (Version 1)
Quarter: 2013Q2

REPORT INFORMATION
  Report Type: Spontaneous
  Country: US (occurrence: US)
  Receive Date: 20130524
  Receipt Date: 20130524
  Transmission Date: 20140414
  Serious: Yes (Other)
  Sender: FDA-Public Use
  Company Number: US-BRISTOL-MYERS SQUIBB COMPANY-18910570

PATIENT
  Age: 63 Year
  Sex: Male
  Weight: 107.93 kg

DRUGS (1)
  1. BYETTA [Suspect]
     Dosage: INJ?DOSE INCREASED:10MCG/SQ INJ BID
     Route: 058

REACTIONS (4)
  - Pneumonia [Unknown]
  - Injection site haemorrhage [Unknown]
  - Weight decreased [Unknown]
  - Injection site extravasation [Unknown]
